FAERS Safety Report 8971526 (Version 2)
Quarter: 2012Q4

REPORT INFORMATION
  Report Type: 
  Country: JP (occurrence: JP)
  Receive Date: 20121218
  Receipt Date: 20121226
  Transmission Date: 20130627
  Serious: Yes (Other)
  Sender: FDA-Public Use
  Company Number: PHHY2012JP116211

PATIENT

DRUGS (3)
  1. NILOTINIB [Suspect]
     Indication: CHRONIC MYELOID LEUKAEMIA
     Dosage: 400 mg, UNK
     Dates: start: 201101
  2. NILOTINIB [Suspect]
     Dosage: 200 mg, daily
     Route: 048
     Dates: start: 2011
  3. NILOTINIB [Suspect]
     Dosage: 200 mg, daily
     Route: 048
     Dates: start: 2011

REACTIONS (2)
  - Electrocardiogram QT prolonged [Unknown]
  - Blood creatinine increased [Unknown]
